FAERS Safety Report 4324716-0 (Version None)
Quarter: 2004Q1

REPORT INFORMATION
  Report Type: 
  Country: None (occurrence: None)
  Receive Date: 20040326
  Receipt Date: 20040309
  Transmission Date: 20041129
  Serious: Yes (Other)
  Sender: FDA-Public Use
  Company Number: WAES 0403USA00861

PATIENT

DRUGS (5)
  1. ATENOLOL [Concomitant]
     Indication: HYPERTENSION
     Route: 048
  2. ZETIA [Suspect]
     Indication: LIPIDS INCREASED
     Route: 048
  3. CONCERTA [Concomitant]
     Indication: ATTENTION DEFICIT/HYPERACTIVITY DISORDER
     Route: 048
  4. NIACIN [Concomitant]
  5. PAMELOR [Concomitant]
     Indication: SLEEP DISORDER
     Route: 048

REACTIONS (1)
  - LIVER FUNCTION TEST ABNORMAL [None]
